FAERS Safety Report 11232302 (Version 2)
Quarter: 2015Q3

REPORT INFORMATION
  Report Type: Spontaneous
  Country: NL (occurrence: NL)
  Receive Date: 20150701
  Receipt Date: 20150715
  Transmission Date: 20151125
  Serious: Yes (Death)
  Sender: FDA-Public Use
  Company Number: NL-IPSEN BIOPHARMACEUTICALS, INC.-2015-4429

PATIENT
  Age: 71 Year
  Sex: Female

DRUGS (6)
  1. DYSPORT [Suspect]
     Active Substance: ABOBOTULINUMTOXINA
     Dosage: 140 UNITS
     Route: 030
     Dates: start: 20150116, end: 20150116
  2. DYSPORT [Suspect]
     Active Substance: ABOBOTULINUMTOXINA
     Dosage: 140 UNITS
     Route: 030
     Dates: start: 20140711, end: 20140711
  3. DYSPORT [Suspect]
     Active Substance: ABOBOTULINUMTOXINA
     Dosage: 140 UNITS
     Route: 030
     Dates: start: 20150612, end: 20150612
  4. DYSPORT [Suspect]
     Active Substance: ABOBOTULINUMTOXINA
     Dosage: 140 UNITS
     Route: 030
     Dates: start: 20140117, end: 20140117
  5. DYSPORT [Suspect]
     Active Substance: ABOBOTULINUMTOXINA
     Indication: MUSCLE SPASTICITY
     Dosage: 140 UNITS
     Route: 030
     Dates: start: 20131011, end: 20131011
  6. DYSPORT [Suspect]
     Active Substance: ABOBOTULINUMTOXINA
     Dosage: 140 UNITS
     Route: 030
     Dates: start: 20141010, end: 20141010

REACTIONS (9)
  - General physical health deterioration [Unknown]
  - Chronic obstructive pulmonary disease [Recovered/Resolved]
  - Weight decreased [Unknown]
  - Product preparation error [Unknown]
  - Pneumonia [Fatal]
  - Chronic obstructive pulmonary disease [Recovered/Resolved]
  - Chronic obstructive pulmonary disease [Recovered/Resolved]
  - Chronic obstructive pulmonary disease [Recovered/Resolved]
  - Chronic obstructive pulmonary disease [Unknown]

NARRATIVE: CASE EVENT DATE: 20131127
